FAERS Safety Report 9909722 (Version 1)
Quarter: 2014Q1

REPORT INFORMATION
  Report Type: Spontaneous
  Country: US (occurrence: None)
  Receive Date: 20140218
  Receipt Date: 20140218
  Transmission Date: 20141002
  Serious: Yes (Disabling)
  Sender: FDA-Public Use
  Company Number: None

PATIENT
  Age: 69 Year
  Sex: Male
  Weight: 81.19 kg

DRUGS (1)
  1. RECLAST [Suspect]
     Indication: OSTEITIS DEFORMANS

REACTIONS (5)
  - Arthralgia [None]
  - Back pain [None]
  - Arthralgia [None]
  - Condition aggravated [None]
  - Muscular weakness [None]
